FAERS Safety Report 10706855 (Version 1)
Quarter: 2015Q1

REPORT INFORMATION
  Report Type: Spontaneous
  Country: US (occurrence: None)
  Receive Date: 20150112
  Receipt Date: 20150112
  Transmission Date: 20150721
  Serious: No
  Sender: FDA-Public Use
  Company Number: None

PATIENT
  Age: 50 Year
  Sex: Female
  Weight: 119.3 kg

DRUGS (2)
  1. VENLAFAXINE [Suspect]
     Active Substance: VENLAFAXINE HYDROCHLORIDE
     Indication: MAJOR DEPRESSION
     Dosage: 2 TABLETS ONCE DAILY TAKEN BY MOUTH
     Route: 048
     Dates: start: 20150102, end: 20150110
  2. VENLAFAXINE [Suspect]
     Active Substance: VENLAFAXINE HYDROCHLORIDE
     Indication: ANXIETY DISORDER
     Dosage: 2 TABLETS ONCE DAILY TAKEN BY MOUTH
     Route: 048
     Dates: start: 20150102, end: 20150110

REACTIONS (9)
  - Suicidal ideation [None]
  - Dizziness [None]
  - Paraesthesia [None]
  - Feeling of despair [None]
  - Visual impairment [None]
  - Hearing impaired [None]
  - Insomnia [None]
  - Depression [None]
  - Scratch [None]

NARRATIVE: CASE EVENT DATE: 20150110
